FAERS Safety Report 22228847 (Version 1)
Quarter: 2023Q2

REPORT INFORMATION
  Report Type: Spontaneous
  Country: US (occurrence: None)
  Receive Date: 20230418
  Receipt Date: 20230418
  Transmission Date: 20230722
  Serious: Yes (Death)
  Sender: FDA-Public Use
  Company Number: None

PATIENT
  Age: 66 Year
  Sex: Male
  Weight: 120.66 kg

DRUGS (25)
  1. ABIRATERONE [Suspect]
     Active Substance: ABIRATERONE
     Indication: Prostate cancer
     Dosage: FREQUENCY : DAILY;?
     Route: 048
     Dates: start: 20230113, end: 20230417
  2. AMLODIPINE [Concomitant]
  3. ATORVASTATIN [Concomitant]
  4. CALCITRIOL [Concomitant]
     Active Substance: CALCITRIOL
  5. CRANBERRY [Concomitant]
  6. ELIQUIS [Concomitant]
  7. EZETIMIBE [Concomitant]
  8. FAMOTIDINE [Concomitant]
  9. FLUOXETINE [Concomitant]
  10. FUROSEMIDE [Concomitant]
  11. HUMALOG [Concomitant]
  12. NORCO [Concomitant]
  13. METHYLPREDNISOLONE [Concomitant]
  14. METOPROLOL [Concomitant]
     Active Substance: METOPROLOL
  15. MONTELUKAST [Concomitant]
  16. MUCINEX [Concomitant]
  17. NITROGLYCERIN [Concomitant]
  18. OZEMPIC [Concomitant]
  19. PANTOPRAZOLE [Concomitant]
  20. PREGABALIN [Concomitant]
  21. SPIRIVA [Concomitant]
  22. SYMBICORT [Concomitant]
  23. TAMSULOSIN [Concomitant]
  24. TRESIBA [Concomitant]
  25. VITAMIN D3 [Concomitant]

REACTIONS (1)
  - Death [None]
